FAERS Safety Report 7500542-6 (Version None)
Quarter: 2011Q2

REPORT INFORMATION
  Report Type: 
  Country: None (occurrence: None)
  Receive Date: 20110517
  Receipt Date: 20110426
  Transmission Date: 20111010
  Serious: Yes (Other)
  Sender: FDA-Public Use
  Company Number: FK201100868

PATIENT
  Age: 10 Year
  Sex: Male

DRUGS (4)
  1. DACARBAZINE [Concomitant]
  2. VINBLASTIN (VINBLASTIN SULFATE) (VINBLASTINE SULFATE) [Concomitant]
  3. DOXORUBICIN HCL [Suspect]
     Indication: HODGKIN'S DISEASE
     Dosage: 360 MG
     Dates: end: 20050615
  4. BLEOMYCIN (BLEOMYCIN) (BLEOMYCIN) [Concomitant]

REACTIONS (2)
  - BONE SARCOMA [None]
  - HYPOAESTHESIA ORAL [None]
